FAERS Safety Report 7381418-4 (Version None)
Quarter: 2011Q1

REPORT INFORMATION
  Report Type: 
  Country: None (occurrence: None)
  Receive Date: 20110321
  Receipt Date: 20110301
  Transmission Date: 20110831
  Serious: Yes (Life-Threatening, Other)
  Sender: FDA-Public Use
  Company Number: 2011-IT-0001

PATIENT
  Age: 43 Year
  Sex: Female

DRUGS (2)
  1. DEPALGOS (OXYCODONE HYDROCHLORIDE W/PARACETAMOL) [Concomitant]
  2. ABSTRAL [Suspect]
     Indication: BREAKTHROUGH PAIN
     Dosage: 2 DOSES OF 100MCG ADMINISTERED ORAL
     Route: 048

REACTIONS (5)
  - SUICIDE ATTEMPT [None]
  - HYPERHIDROSIS [None]
  - HOT FLUSH [None]
  - VERTIGO [None]
  - DRUG INEFFECTIVE [None]
